FAERS Safety Report 10199374 (Version 1)
Quarter: 2014Q2

REPORT INFORMATION
  Report Type: Spontaneous
  Country: FR (occurrence: FR)
  Receive Date: 20140527
  Receipt Date: 20140527
  Transmission Date: 20141212
  Serious: Yes (Hospitalization, Other)
  Sender: FDA-Public Use
  Company Number: FR-BRISTOL-MYERS SQUIBB COMPANY-20802831

PATIENT
  Age: 57 Year
  Sex: Female

DRUGS (11)
  1. ORENCIA FOR INJ 250 MG/VIAL [Suspect]
     Route: 042
     Dates: start: 20140410
  2. MABTHERA [Suspect]
     Route: 042
     Dates: start: 20131008, end: 20131022
  3. VOLTARENE [Suspect]
     Route: 048
     Dates: start: 20140414, end: 20140424
  4. METOJECT [Concomitant]
     Dosage: SOLUTION FOR INJECTION IN PRE-FILLED SYRINGE
     Route: 030
     Dates: start: 2011, end: 20140424
  5. SPIFEN [Concomitant]
     Indication: PAIN
     Dosage: FILM-COATED TABLET
     Route: 048
     Dates: start: 201308, end: 20140424
  6. EUPANTOL [Concomitant]
     Route: 048
     Dates: start: 201311
  7. LYSANXIA [Concomitant]
     Dosage: TABLET
     Dates: start: 2011
  8. EFFEXOR [Concomitant]
     Dosage: ER CAPSULE
     Route: 048
     Dates: start: 2011
  9. LODOZ [Concomitant]
     Dosage: 1DF: 2.5 MG/6.25 MG
     Route: 048
     Dates: start: 2011
  10. SPECIAFOLDINE [Concomitant]
     Dosage: 3 TABLETS PER WEEK
     Route: 048
  11. KARDEGIC [Concomitant]
     Dosage: POWDER FOR ORAL SOLUTION
     Route: 048
     Dates: start: 201402, end: 20140424

REACTIONS (5)
  - Agranulocytosis [Recovered/Resolved]
  - Hyperthermia [Recovered/Resolved]
  - C-reactive protein increased [Recovered/Resolved]
  - Oral herpes [Recovered/Resolved]
  - Staphylococcal infection [Recovered/Resolved]
